FAERS Safety Report 19708114 (Version 1)
Quarter: 2021Q3

REPORT INFORMATION
  Report Type: Spontaneous
  Country: FR (occurrence: FR)
  Receive Date: 20210817
  Receipt Date: 20210817
  Transmission Date: 20211014
  Serious: Yes (Other)
  Sender: FDA-Public Use
  Company Number: FR-MYLANLABS-2021M1051180

PATIENT
  Sex: Male

DRUGS (5)
  1. CLARITHROMYCIN. [Suspect]
     Active Substance: CLARITHROMYCIN
     Indication: MYCOBACTERIUM AVIUM COMPLEX INFECTION
     Dosage: 750 MILLIGRAM
     Route: 065
     Dates: start: 20030228, end: 200403
  2. RIFABUTIN. [Suspect]
     Active Substance: RIFABUTIN
     Dosage: 450 MILLIGRAM, QD
     Route: 065
     Dates: start: 20030228
  3. AMIKACIN. [Concomitant]
     Active Substance: AMIKACIN
     Indication: MYCOBACTERIUM AVIUM COMPLEX INFECTION
     Dosage: UNK
     Route: 030
     Dates: start: 20030228, end: 200303
  4. ETHAMBUTOL [Concomitant]
     Active Substance: ETHAMBUTOL HYDROCHLORIDE
     Indication: MYCOBACTERIUM AVIUM COMPLEX INFECTION
     Dosage: UNK
     Route: 065
     Dates: start: 20030228, end: 200403
  5. RIFABUTIN. [Suspect]
     Active Substance: RIFABUTIN
     Indication: MYCOBACTERIUM AVIUM COMPLEX INFECTION
     Dosage: 300 MILLIGRAM, QD
     Route: 065
     Dates: start: 20030520, end: 20030617

REACTIONS (2)
  - Drug interaction [Unknown]
  - Uveitis [Unknown]

NARRATIVE: CASE EVENT DATE: 2003
